FAERS Safety Report 5120567-8 (Version None)
Quarter: 2006Q4

REPORT INFORMATION
  Report Type: 
  Country: None (occurrence: None)
  Receive Date: 20061004
  Receipt Date: 20060921
  Transmission Date: 20070319
  Serious: Yes (Other)
  Sender: FDA-Public Use
  Company Number: PHBS2006BR14753

PATIENT
  Age: 82 Year
  Sex: Female

DRUGS (3)
  1. ACLASTA [Suspect]
     Indication: OSTEOPOROSIS
     Dosage: UNK, UNK
     Dates: start: 20060919
  2. CALCIUM CARBONATE W/VITAMIN D NOS [Concomitant]
     Dosage: 1 G/DAY
  3. CALCIUM CARBONATE W/VITAMIN D NOS [Concomitant]
     Dosage: 1.5 G/DAY

REACTIONS (2)
  - HYPOCALCAEMIA [None]
  - SYNCOPE [None]
